FAERS Safety Report 9457271 (Version 1)
Quarter: 2013Q3

REPORT INFORMATION
  Report Type: Report from Study
  Country: JP (occurrence: JP)
  Receive Date: 20130814
  Receipt Date: 20130814
  Transmission Date: 20140515
  Serious: Yes (Hospitalization)
  Sender: FDA-Public Use
  Company Number: PHHY2013JP086047

PATIENT
  Age: 44 Year
  Sex: Male
  Weight: 99 kg

DRUGS (9)
  1. FTY 720 [Suspect]
     Indication: MULTIPLE SCLEROSIS
     Dosage: 0.5 MG, QD
     Route: 048
     Dates: start: 20120229
  2. ZYPREXA [Concomitant]
  3. IMPROMEN [Concomitant]
  4. AKINETON                                /AUS/ [Concomitant]
  5. LENDORMIN [Concomitant]
  6. HALCION [Concomitant]
  7. METHYCOBAL [Concomitant]
  8. TAKEPRON [Concomitant]
  9. CALONAL [Concomitant]

REACTIONS (3)
  - Retinal detachment [Recovered/Resolved with Sequelae]
  - Visual acuity reduced [Unknown]
  - Vitreous disorder [Unknown]
